FAERS Safety Report 19452231 (Version 1)
Quarter: 2021Q2

REPORT INFORMATION
  Report Type: Spontaneous
  Country: SG (occurrence: SG)
  Receive Date: 20210623
  Receipt Date: 20210623
  Transmission Date: 20210717
  Serious: Yes (Hospitalization, Other)
  Sender: FDA-Public Use
  Company Number: SG-SNT-000116

PATIENT
  Age: 69 Year
  Sex: Male

DRUGS (1)
  1. POSACONAZOLE [Suspect]
     Active Substance: POSACONAZOLE
     Indication: MUCORMYCOSIS
     Route: 065

REACTIONS (6)
  - Immunodeficiency [Recovered/Resolved]
  - Hypercalcaemia [Recovered/Resolved]
  - Autoimmune disorder [Recovered/Resolved]
  - Abdominal pain [Recovered/Resolved]
  - Pneumoperitoneum [Recovered/Resolved]
  - Product use in unapproved indication [Unknown]
